FAERS Safety Report 4824999-4 (Version None)
Quarter: 2005Q4

REPORT INFORMATION
  Report Type: 
  Country: None (occurrence: None)
  Receive Date: 20051014
  Receipt Date: 20050801
  Transmission Date: 20060501
  Serious: Yes (Hospitalization, Other)
  Sender: FDA-Public Use
  Company Number: 2005062145

PATIENT
  Age: 77 Year
  Sex: Male

DRUGS (1)
  1. MACUGEN [Suspect]
     Indication: MACULAR DEGENERATION
     Dosage: (0.3 MG, 1 IN 6 WK), INTRAVITREOUS
     Dates: start: 20050221

REACTIONS (2)
  - ENDOPHTHALMITIS [None]
  - VISUAL ACUITY REDUCED [None]
